FAERS Safety Report 21355632 (Version 3)
Quarter: 2023Q2

REPORT INFORMATION
  Report Type: Spontaneous
  Country: US (occurrence: US)
  Receive Date: 20220920
  Receipt Date: 20230414
  Transmission Date: 20230722
  Serious: Yes (Other)
  Sender: FDA-Public Use
  Company Number: US-BRISTOL-MYERS SQUIBB COMPANY-2022-106568

PATIENT
  Age: 61 Year
  Sex: Female

DRUGS (4)
  1. ELIQUIS [Suspect]
     Active Substance: APIXABAN
     Indication: Cerebrovascular accident prophylaxis
     Route: 048
  2. ELIQUIS [Suspect]
     Active Substance: APIXABAN
     Indication: Pulmonary embolism
     Dosage: DOSE : UNAVAILABLE; FREQ : UNAVAILABLE
     Dates: start: 2018
  3. COVID-19 VACCINE NOS [Suspect]
     Active Substance: COVID-19 VACCINE NOS
     Indication: Product used for unknown indication
  4. LISINOPRIL [Concomitant]
     Active Substance: LISINOPRIL
     Indication: Product used for unknown indication

REACTIONS (10)
  - Seizure [Unknown]
  - Spinal cord neoplasm [Unknown]
  - Nasopharyngitis [Unknown]
  - Postural orthostatic tachycardia syndrome [Unknown]
  - Intervertebral disc protrusion [Unknown]
  - Chills [Unknown]
  - Tremor [Unknown]
  - Lung neoplasm [Unknown]
  - Ocular neoplasm [Unknown]
  - Breast neoplasm [Unknown]

NARRATIVE: CASE EVENT DATE: 20210101
